APPROVED DRUG PRODUCT: CAFFEINE CITRATE
Active Ingredient: CAFFEINE CITRATE
Strength: EQ 30MG BASE/3ML (EQ 10MG BASE/ML)
Dosage Form/Route: SOLUTION;ORAL
Application: A078002 | Product #001 | TE Code: AA
Applicant: FRESENIUS KABI USA LLC
Approved: Jan 31, 2008 | RLD: No | RS: No | Type: RX